FAERS Safety Report 12632181 (Version 2)
Quarter: 2016Q3

REPORT INFORMATION
  Report Type: Spontaneous
  Country: US (occurrence: US)
  Receive Date: 20160808
  Receipt Date: 20160808
  Transmission Date: 20161109
  Serious: Yes (Other)
  Sender: FDA-Public Use
  Company Number: US-BEH-2016062087

PATIENT
  Age: 89 Year
  Sex: Female
  Weight: 63 kg

DRUGS (28)
  1. RANITIDINE. [Concomitant]
     Active Substance: RANITIDINE
  2. PREDNISONE. [Concomitant]
     Active Substance: PREDNISONE
  3. BUDESONIDE. [Concomitant]
     Active Substance: BUDESONIDE
  4. GABAPENTIN. [Concomitant]
     Active Substance: GABAPENTIN
  5. AFRIN [Concomitant]
     Active Substance: OXYMETAZOLINE
  6. PROAIR HFA [Concomitant]
     Active Substance: ALBUTEROL SULFATE
  7. LUMIGAN [Concomitant]
     Active Substance: BIMATOPROST
  8. AMLODIPINE [Concomitant]
     Active Substance: AMLODIPINE BESYLATE
  9. HIZENTRA [Suspect]
     Active Substance: HUMAN IMMUNOGLOBULIN G
     Indication: IMMUNODEFICIENCY COMMON VARIABLE
     Route: 058
     Dates: start: 20101027
  10. DIPHENHYDRAMINE. [Concomitant]
     Active Substance: DIPHENHYDRAMINE
  11. LISINOPRIL. [Concomitant]
     Active Substance: LISINOPRIL
  12. CLOTRIMAZOLE. [Concomitant]
     Active Substance: CLOTRIMAZOLE
  13. CHLORPHENIRAMINE. [Concomitant]
     Active Substance: CHLORPHENIRAMINE
  14. LANTUS [Concomitant]
     Active Substance: INSULIN GLARGINE
  15. ASPIRIN. [Concomitant]
     Active Substance: ASPIRIN
  16. VICODIN [Concomitant]
     Active Substance: ACETAMINOPHEN\HYDROCODONE BITARTRATE
  17. LORAZEPAM. [Concomitant]
     Active Substance: LORAZEPAM
  18. CITRACAL+D [Concomitant]
  19. EPIPEN [Concomitant]
     Active Substance: EPINEPHRINE
  20. OXYCONTIN [Concomitant]
     Active Substance: OXYCODONE HYDROCHLORIDE
  21. LOSARTAN. [Concomitant]
     Active Substance: LOSARTAN
  22. DULCOLAX NOS [Concomitant]
     Active Substance: BISACODYL OR DOCUSATE SODIUM
  23. ALBUTEROL. [Concomitant]
     Active Substance: ALBUTEROL
  24. ARTHRITIS PAIN RELIEF [Concomitant]
     Active Substance: ACETAMINOPHEN
  25. LIDOCAINE. [Concomitant]
     Active Substance: LIDOCAINE
  26. VALIUM [Concomitant]
     Active Substance: DIAZEPAM
  27. ZETIA [Concomitant]
     Active Substance: EZETIMIBE
  28. MIRALAX [Concomitant]
     Active Substance: POLYETHYLENE GLYCOL 3350

REACTIONS (1)
  - Dyspnoea [Unknown]

NARRATIVE: CASE EVENT DATE: 201602
